FAERS Safety Report 6066146-X (Version None)
Quarter: 2009Q1

REPORT INFORMATION
  Report Type: 
  Country: None (occurrence: None)
  Receive Date: 20090203
  Receipt Date: 20090116
  Transmission Date: 20090719
  Serious: Yes (Death)
  Sender: FDA-Public Use
  Company Number: 2009S1000075

PATIENT
  Age: 38 Year
  Sex: Male

DRUGS (2)
  1. DARVON [Suspect]
     Dosage: PO
     Route: 048
     Dates: end: 20070101
  2. ETHANOL [Suspect]
     Dosage: PO
     Route: 048
     Dates: end: 20070101

REACTIONS (3)
  - CARDIAC ARREST [None]
  - INTENTIONAL DRUG MISUSE [None]
  - RESPIRATORY ARREST [None]
